FAERS Safety Report 4780255-4 (Version None)
Quarter: 2005Q3

REPORT INFORMATION
  Report Type: 
  Country: None (occurrence: None)
  Receive Date: 20050926
  Receipt Date: 20050907
  Transmission Date: 20060218
  Serious: Yes (Life-Threatening, Hospitalization)
  Sender: FDA-Public Use
  Company Number: 2005-01762

PATIENT
  Age: 48 Year
  Sex: Male
  Weight: 81.8 kg

DRUGS (13)
  1. VELCADE [Suspect]
     Indication: NON-HODGKIN'S LYMPHOMA
     Dates: start: 20050804, end: 20050807
  2. RITUXAN [Suspect]
     Indication: NON-HODGKIN'S LYMPHOMA
     Dates: start: 20050804
  3. CYCLOPHOSPHAMIDE [Suspect]
     Indication: NON-HODGKIN'S LYMPHOMA
     Dates: start: 20050804
  4. DOXORUBICIN HCL [Suspect]
     Indication: NON-HODGKIN'S LYMPHOMA
     Dates: start: 20050804
  5. VINCRISTINE [Suspect]
     Indication: NON-HODGKIN'S LYMPHOMA
     Dates: start: 20050804
  6. PREDNISONE [Suspect]
     Indication: NON-HODGKIN'S LYMPHOMA
     Dates: start: 20050804
  7. MORPHINE [Concomitant]
     Indication: NON-HODGKIN'S LYMPHOMA
     Dates: start: 20050804
  8. PROPRANOLOL [Concomitant]
     Indication: NON-HODGKIN'S LYMPHOMA
     Dates: start: 20050804
  9. REGLAN [Concomitant]
  10. INSULIN [Concomitant]
  11. BACTRIM [Concomitant]
  12. SENOKOT [Concomitant]
  13. CIPRO [Concomitant]

REACTIONS (15)
  - ANAEMIA [None]
  - ATRIAL FIBRILLATION [None]
  - BILE DUCT OBSTRUCTION [None]
  - CATHETER SITE CELLULITIS [None]
  - DIARRHOEA [None]
  - FEBRILE NEUTROPENIA [None]
  - HYPOKALAEMIA [None]
  - HYPOMAGNESAEMIA [None]
  - HYPOTENSION [None]
  - NAUSEA [None]
  - PEPTIC ULCER [None]
  - RENAL FAILURE ACUTE [None]
  - SEPSIS [None]
  - URINE ANALYSIS ABNORMAL [None]
  - VOMITING [None]
